FAERS Safety Report 5533507-4 (Version None)
Quarter: 2007Q4

REPORT INFORMATION
  Report Type: 
  Country: None (occurrence: None)
  Receive Date: 20071204
  Receipt Date: 20071123
  Transmission Date: 20080405
  Serious: Yes (Life-Threatening, Hospitalization, Other)
  Sender: FDA-Public Use
  Company Number: DK-PFIZER INC-2007099454

PATIENT
  Sex: Female

DRUGS (5)
  1. RELPAX [Suspect]
     Indication: MIGRAINE
  2. ZOLOFT [Concomitant]
  3. APOZEPAM [Concomitant]
  4. PRIMPERAN INJ [Concomitant]
  5. GABAPENTIN [Concomitant]

REACTIONS (7)
  - ARTERIOSPASM CORONARY [None]
  - BRAIN DAMAGE [None]
  - CARDIAC ARREST [None]
  - HYPOXIA [None]
  - MIGRAINE [None]
  - MYOCARDIAL INFARCTION [None]
  - VENTRICULAR FIBRILLATION [None]
